FAERS Safety Report 7130166-4 (Version None)
Quarter: 2010Q4

REPORT INFORMATION
  Report Type: 
  Country: None (occurrence: None)
  Receive Date: 20101112
  Receipt Date: 20101103
  Transmission Date: 20110411
  Serious: Yes (Hospitalization)
  Sender: FDA-Public Use
  Company Number: LEO-2010-00999

PATIENT
  Age: 33 Year
  Sex: Male

DRUGS (1)
  1. INNOHEP [Suspect]
     Indication: VENOUS THROMBOSIS LIMB

REACTIONS (7)
  - CANDIDA TEST POSITIVE [None]
  - DYSPNOEA [None]
  - LOCAL SWELLING [None]
  - OXYGEN SATURATION DECREASED [None]
  - SUPERIOR VENA CAVAL OCCLUSION [None]
  - SUPERIOR VENA CAVAL STENOSIS [None]
  - THROMBOSIS IN DEVICE [None]
